FAERS Safety Report 18056452 (Version 1)
Quarter: 2020Q3

REPORT INFORMATION
  Report Type: Spontaneous
  Country: US (occurrence: US)
  Receive Date: 20200722
  Receipt Date: 20200722
  Transmission Date: 20201103
  Serious: Yes (Life-Threatening, Other)
  Sender: FDA-Public Use
  Company Number: US-PURDUE-USA-2020-0158267

PATIENT
  Sex: Male

DRUGS (2)
  1. OXYCONTIN [Suspect]
     Active Substance: OXYCODONE HYDROCHLORIDE
     Indication: ARTHRITIS
     Dosage: UNK
     Route: 048
     Dates: start: 2011
  2. OXYCONTIN [Suspect]
     Active Substance: OXYCODONE HYDROCHLORIDE
     Indication: SCIATICA

REACTIONS (6)
  - Diverticulitis [Recovered/Resolved with Sequelae]
  - Haemorrhage [Unknown]
  - Drug dependence [Unknown]
  - Myocardial infarction [Unknown]
  - Constipation [Recovered/Resolved with Sequelae]
  - Cardiac failure [Unknown]
